FAERS Safety Report 24410601 (Version 2)
Quarter: 2024Q4

REPORT INFORMATION
  Report Type: Spontaneous
  Country: PL (occurrence: PL)
  Receive Date: 20241008
  Receipt Date: 20241014
  Transmission Date: 20250114
  Serious: Yes (Hospitalization)
  Sender: BAXTER
  Company Number: PL-BAXTER-2024BAX025448

PATIENT
  Age: 63 Year
  Sex: Male

DRUGS (5)
  1. PROPOFOL [Suspect]
     Active Substance: PROPOFOL
     Indication: Sedation
     Dosage: 600 MG/60 ML/8 ML/H, CONTINUOUS INFUSION
     Route: 041
  2. PROPOFOL [Suspect]
     Active Substance: PROPOFOL
     Indication: Analgesic therapy
  3. MORPHINE [Concomitant]
     Active Substance: MORPHINE
     Indication: Analgesic therapy
     Dosage: 40 MG/50 ML/2 ML/H, CONTINUOUS INFUSION
     Route: 041
  4. MORPHINE [Concomitant]
     Active Substance: MORPHINE
     Indication: Sedation
  5. NOREPINEPHRINE [Concomitant]
     Active Substance: NOREPINEPHRINE\NOREPINEPHRINE BITARTRATE
     Dosage: (CATECHOLAMINES) 8 MG/50 ML/3 ML/H, CONTINUOUS INFUSION
     Route: 041

REACTIONS (1)
  - Decubitus ulcer [Recovered/Resolved]
